FAERS Safety Report 9400418 (Version 2)
Quarter: 2013Q3

REPORT INFORMATION
  Report Type: Spontaneous
  Country: DE (occurrence: None)
  Receive Date: 20130711
  Receipt Date: 20130808
  Transmission Date: 20140515
  Serious: Yes (Hospitalization)
  Sender: FDA-Public Use
  Company Number: 2013MPI00394

PATIENT
  Age: 59 Year
  Sex: Male

DRUGS (6)
  1. BRENTUXIMAB VEDOTIN (BRENTUXIMAB VEDOTIN) INJECTION [Suspect]
     Indication: HODGKIN^S DISEASE
     Route: 042
     Dates: end: 20130606
  2. ETOPOSIDE (ETOPOSIDE) [Suspect]
     Indication: HODGKIN^S DISEASE
     Dosage: DOSAGE ADMINISTERED IN CYCLES.
     Route: 042
     Dates: end: 20130609
  3. CYCLOPHOSPHAMIDE (CYCLOPHOSPHAMIDE) [Suspect]
     Indication: HODGKIN^S DISEASE
     Dosage: DOSAGE ADMINISTERED IN CYCLES.
     Route: 042
     Dates: end: 20130607
  4. DOXORUBICIN (DOXORUBICIN) (DOXORUBICIN) [Suspect]
     Indication: HODGKIN^S DISEASE
     Dosage: DOSAGE ADMINISTERED IN CYCLES.
     Route: 042
     Dates: end: 20130607
  5. DACARBAZINE [Suspect]
     Indication: HODGKIN^S DISEASE
     Dosage: DOSAGE ADMINISTERED IN CYCLES.
     Route: 042
     Dates: end: 20130609
  6. DEXAMETHASONE (DEXAMETHASONE) [Suspect]
     Indication: HODGKIN^S DISEASE
     Dosage: DOSAGE ADMINISTERED IN CYCLES.
     Route: 042
     Dates: end: 20130610

REACTIONS (3)
  - Anal abscess [None]
  - Pyrexia [None]
  - Proctalgia [None]
